FAERS Safety Report 4304148-1 (Version None)
Quarter: 2004Q1

REPORT INFORMATION
  Report Type: 
  Country: None (occurrence: None)
  Receive Date: 20040225
  Receipt Date: 20030908
  Transmission Date: 20041129
  Serious: Yes (Hospitalization)
  Sender: FDA-Public Use
  Company Number: PHBS2003CO09718

PATIENT
  Age: 3 Year
  Sex: Male

DRUGS (4)
  1. TEGRETOL [Suspect]
     Indication: STURGE-WEBER SYNDROME
     Dosage: 400 CC EVERY 6 HOURS
     Route: 048
  2. TEGRETOL [Suspect]
     Dosage: 13 CC EVERY 8 HOURS
     Route: 048
     Dates: start: 20010101
  3. PHENOBARBITAL TAB [Concomitant]
  4. EPAMIN [Concomitant]

REACTIONS (3)
  - CONVULSION [None]
  - NERVOUS SYSTEM DISORDER [None]
  - VIRAL INFECTION [None]
